FAERS Safety Report 5705086-X (Version None)
Quarter: 2008Q2

REPORT INFORMATION
  Report Type: 
  Country: None (occurrence: None)
  Receive Date: 20080414
  Receipt Date: 20080402
  Transmission Date: 20081010
  Serious: Yes (Other)
  Sender: FDA-Public Use
  Company Number: ZW-GILEAD-2007-0014058

PATIENT
  Sex: Male

DRUGS (8)
  1. TENOFOVIR DISOPROXIL FUMARATE [Suspect]
     Indication: HIV INFECTION
     Dates: start: 20030908, end: 20070530
  2. TENOFOVIR DISOPROXIL FUMARATE [Suspect]
     Dates: start: 20071009, end: 20071018
  3. TENOFOVIR DISOPROXIL FUMARATE [Suspect]
     Dates: start: 20071019
  4. COMBIVIR [Concomitant]
     Indication: HIV INFECTION
     Dates: end: 20071022
  5. LAMIVUDINE [Concomitant]
     Dates: start: 20071022
  6. STAVUDINE [Concomitant]
     Dates: start: 20071022
  7. COTRIMOXAZOLE [Concomitant]
  8. FLUCONAZOLE [Concomitant]

REACTIONS (1)
  - OVERDOSE [None]
